FAERS Safety Report 10375682 (Version 1)
Quarter: 2014Q3

REPORT INFORMATION
  Report Type: Spontaneous
  Country: US (occurrence: None)
  Receive Date: 20140804
  Receipt Date: 20140804
  Transmission Date: 20150326
  Serious: Yes (Life-Threatening, Hospitalization)
  Sender: FDA-Public Use
  Company Number: 1713747-2013-99928

PATIENT
  Age: 79 Year
  Sex: Male
  Weight: 95 kg

DRUGS (20)
  1. LASIX [Concomitant]
     Active Substance: FUROSEMIDE
  2. MINOXIDIL. [Concomitant]
     Active Substance: MINOXIDIL
  3. LOPRESSOR [Concomitant]
     Active Substance: METOPROLOL TARTRATE
  4. CALCIUM CARBONATE. [Concomitant]
     Active Substance: CALCIUM CARBONATE
  5. PHOSLO [Concomitant]
     Active Substance: CALCIUM ACETATE
  6. LEVOTHYROXINE [Concomitant]
     Active Substance: LEVOTHYROXINE
  7. COZAAR [Concomitant]
     Active Substance: LOSARTAN POTASSIUM
  8. DELFLEX WITH DEXTROSE 1.5% LOW MAGNESIUM LOW CALCIUM [Suspect]
     Active Substance: CALCIUM CHLORIDE\DEXTROSE MONOHYDRATE\MAGNESIUM CHLORIDE\SODIUM CHLORIDE\SODIUM LACTATE
     Indication: PERITONEAL DIALYSIS
     Dosage: 3,000ML, X5, DAILY IP (033
     Route: 033
     Dates: start: 20130723
  9. AMLODIPINE [Concomitant]
     Active Substance: AMLODIPINE BESYLATE
  10. LEXAPRO [Concomitant]
     Active Substance: ESCITALOPRAM OXALATE
  11. PRAVASTATIN [Concomitant]
     Active Substance: PRAVASTATIN\PRAVASTATIN SODIUM
  12. ASPIRIN. [Concomitant]
     Active Substance: ASPIRIN
  13. VENTOLIN [Concomitant]
     Active Substance: ALBUTEROL SULFATE
  14. FISH OIL [Concomitant]
     Active Substance: FISH OIL
  15. PERITONEAL DIALYSIS CYCLER SET [Concomitant]
  16. PERITONEAL DIALYSIS DELIVERY SYSTEM [Concomitant]
  17. ZOFRAN [Concomitant]
     Active Substance: ONDANSETRON HYDROCHLORIDE
  18. LOSARTAN POTASSIUM. [Concomitant]
     Active Substance: LOSARTAN POTASSIUM
  19. MULTIVITAMINS [Concomitant]
     Active Substance: VITAMINS
  20. OXYGEN 2L [Concomitant]

REACTIONS (2)
  - Dyspnoea [None]
  - Acute myocardial infarction [None]

NARRATIVE: CASE EVENT DATE: 20130723
